FAERS Safety Report 8059371-X (Version None)
Quarter: 2012Q1

REPORT INFORMATION
  Report Type: 
  Country: None (occurrence: None)
  Receive Date: 20120120
  Receipt Date: 20120118
  Transmission Date: 20120608
  Serious: Yes (Death)
  Sender: FDA-Public Use
  Company Number: US-CELGENEUS-163-21880-12011782

PATIENT
  Sex: Female

DRUGS (17)
  1. GABAPENTIN [Concomitant]
     Dosage: 100 MILLIGRAM
     Route: 065
  2. LODOSYN [Concomitant]
     Dosage: 25 MILLIGRAM
     Route: 065
  3. STOOL SOFTENER [Concomitant]
     Dosage: 100-30
     Route: 065
  4. LEVOTHYROXINE SODIUM [Concomitant]
     Dosage: 50 MICROGRAM
     Route: 065
  5. LACTULOSE [Concomitant]
     Dosage: 10GM/15
     Route: 065
  6. MIRALAX [Concomitant]
     Dosage: 3350 NF
     Route: 065
  7. OXYCODONE HCL [Concomitant]
     Dosage: 5 MILLIGRAM
     Route: 065
  8. PROCHLORPERAZINE [Concomitant]
     Dosage: 10 MILLIGRAM
     Route: 065
  9. REVLIMID [Suspect]
     Dosage: 50 MILLIGRAM
     Route: 048
     Dates: start: 20111219
  10. FLUCONAZOLE [Concomitant]
     Dosage: 50 MILLIGRAM
     Route: 065
  11. LEVOFLOXACIN [Concomitant]
     Dosage: 250 MILLIGRAM
     Route: 065
  12. NEXIUM [Concomitant]
     Dosage: 20 MILLIGRAM
     Route: 065
  13. OSCAL 500 [Concomitant]
     Dosage: 200 D-3
     Route: 065
  14. ADVAIR DISKUS 100/50 [Concomitant]
     Dosage: 100/50
     Route: 065
  15. TESSALON [Concomitant]
     Dosage: 200 MILLIGRAM
     Route: 065
  16. METOPROLOL [Concomitant]
     Dosage: 25 MILLIGRAM
     Route: 065
  17. ACYCLOVIR [Concomitant]
     Dosage: 200 MILLIGRAM
     Route: 065

REACTIONS (1)
  - DEATH [None]
